FAERS Safety Report 7958785-3 (Version None)
Quarter: 2011Q4

REPORT INFORMATION
  Report Type: 
  Country: None (occurrence: None)
  Receive Date: 20111206
  Receipt Date: 20111128
  Transmission Date: 20120403
  Serious: Yes (Death, Other)
  Sender: FDA-Public Use
  Company Number: US-BAYER-2011-114989

PATIENT
  Age: 40 Year
  Sex: Female

DRUGS (2)
  1. MIRENA [Suspect]
     Dosage: UNK
     Dates: start: 20111101
  2. MIRENA [Suspect]
     Dosage: UNK
     Dates: start: 20060101, end: 20111101

REACTIONS (1)
  - CEREBRAL INFARCTION [None]
